FAERS Safety Report 6820510-7 (Version None)
Quarter: 2010Q3

REPORT INFORMATION
  Report Type: 
  Country: None (occurrence: None)
  Receive Date: 20100707
  Receipt Date: 20100706
  Transmission Date: 20110219
  Serious: Yes (Other)
  Sender: FDA-Public Use
  Company Number: DE-BRISTOL-MYERS SQUIBB COMPANY-15112279

PATIENT
  Age: 48 Year
  Sex: Male
  Weight: 95 kg

DRUGS (5)
  1. ORENCIA [Suspect]
     Indication: RHEUMATOID ARTHRITIS
     Route: 042
     Dates: start: 20081201
  2. IBUPROFEN [Suspect]
     Indication: RHEUMATOID ARTHRITIS
  3. DECORTIN [Suspect]
     Indication: RHEUMATOID ARTHRITIS
  4. MTX [Suspect]
     Indication: RHEUMATOID ARTHRITIS
  5. PANTOZOL [Concomitant]
     Indication: PROPHYLAXIS

REACTIONS (3)
  - PERIPHERAL ARTERIAL OCCLUSIVE DISEASE [None]
  - THROMBOSIS [None]
  - URINARY TRACT INFECTION [None]
